FAERS Safety Report 4617111-8 (Version None)
Quarter: 2005Q1

REPORT INFORMATION
  Report Type: 
  Country: None (occurrence: None)
  Receive Date: 20050321
  Receipt Date: 20050301
  Transmission Date: 20050727
  Serious: Yes (Life-Threatening)
  Sender: FDA-Public Use
  Company Number: 2005-124819-NL

PATIENT
  Age: 66 Year
  Sex: Female

DRUGS (2)
  1. MIRTAZAPINE [Suspect]
     Dosage: 15 MG QD
     Dates: start: 20020601
  2. ROFECOXIB [Suspect]
     Indication: ARTHRALGIA
     Dosage: 1 DF BID ORAL
     Route: 048
     Dates: start: 20030129

REACTIONS (4)
  - CIRCULATORY COLLAPSE [None]
  - PAIN IN EXTREMITY [None]
  - PULMONARY EMBOLISM [None]
  - PULMONARY INFARCTION [None]
